FAERS Safety Report 5098702-X (Version None)
Quarter: 2006Q3

REPORT INFORMATION
  Report Type: 
  Country: None (occurrence: None)
  Receive Date: 20060905
  Receipt Date: 20060818
  Transmission Date: 20061208
  Serious: Yes (Other)
  Sender: FDA-Public Use
  Company Number: 2006-08-1232

PATIENT
  Age: 66 Year
  Sex: Female
  Weight: 87 kg

DRUGS (1)
  1. DACARBAZINE [Suspect]
     Indication: METASTATIC MALIGNANT MELANOMA
     Dosage: 850 MG/M2 INTRAVENOUS
     Route: 042
     Dates: start: 20050802, end: 20060725

REACTIONS (2)
  - NO ADVERSE DRUG EFFECT [None]
  - OVERDOSE [None]
